FAERS Safety Report 22535962 (Version 2)
Quarter: 2023Q2

REPORT INFORMATION
  Report Type: Spontaneous
  Country: DE (occurrence: DE)
  Receive Date: 20230608
  Receipt Date: 20230628
  Transmission Date: 20230721
  Serious: Yes (Hospitalization, Other)
  Sender: FDA-Public Use
  Company Number: DE-SAMSUNG BIOEPIS-SB-2023-13066

PATIENT
  Age: 72 Year
  Sex: Female
  Weight: 91.5 kg

DRUGS (17)
  1. CARBOPLATIN [Suspect]
     Active Substance: CARBOPLATIN
     Indication: Breast cancer
     Dosage: 5 AUC
     Route: 042
     Dates: start: 20230328, end: 20230508
  2. PACLITAXEL [Suspect]
     Active Substance: PACLITAXEL
     Indication: Breast cancer female
     Dosage: DAY 15
     Route: 042
  3. PACLITAXEL [Suspect]
     Active Substance: PACLITAXEL
     Indication: Breast cancer
     Route: 042
     Dates: end: 20230508
  4. PACLITAXEL [Suspect]
     Active Substance: PACLITAXEL
     Dosage: DAY 8
     Route: 042
  5. PACLITAXEL [Suspect]
     Active Substance: PACLITAXEL
     Dosage: DAY 1
     Route: 042
     Dates: start: 20230328
  6. PACLITAXEL [Suspect]
     Active Substance: PACLITAXEL
     Route: 042
     Dates: start: 20230328, end: 20230508
  7. PERTUZUMAB [Suspect]
     Active Substance: PERTUZUMAB
     Indication: Breast cancer female
     Dosage: 420 MG
     Route: 042
     Dates: start: 20230328, end: 20230508
  8. PERTUZUMAB [Suspect]
     Active Substance: PERTUZUMAB
     Indication: Breast cancer
  9. ONTRUZANT [Suspect]
     Active Substance: TRASTUZUMAB-DTTB
     Indication: Breast cancer
     Route: 042
     Dates: start: 20230328, end: 20230508
  10. ONTRUZANT [Suspect]
     Active Substance: TRASTUZUMAB-DTTB
     Dosage: MAINTENANCE DOSE
     Route: 042
     Dates: end: 20230508
  11. CETIRIZINE HYDROCHLORIDE [Concomitant]
     Active Substance: CETIRIZINE HYDROCHLORIDE
     Indication: Hypersensitivity
     Route: 048
  12. BETAHISTINE HYDROCHLORIDE [Concomitant]
     Active Substance: BETAHISTINE HYDROCHLORIDE
     Indication: Hypertension
     Route: 048
     Dates: start: 19970630
  13. ELIQUIS [Concomitant]
     Active Substance: APIXABAN
     Indication: Thrombosis
     Route: 048
     Dates: start: 20180630
  14. LEVOTHYROXINE SODIUM [Concomitant]
     Active Substance: LEVOTHYROXINE SODIUM
     Indication: Hypothyroidism
     Dosage: 125 UG
     Route: 048
     Dates: start: 19870630
  15. METAMIZOLE [Concomitant]
     Active Substance: METAMIZOLE
     Indication: Pain
     Dosage: 500 MG
     Route: 048
  16. VALSARTAN [Concomitant]
     Active Substance: VALSARTAN
     Indication: Hypertension
     Dosage: 160 MG
     Route: 048
     Dates: start: 20100630
  17. AMLODIPINE BESYLATE [Concomitant]
     Active Substance: AMLODIPINE BESYLATE
     Indication: Hypertension
     Dates: start: 20100630

REACTIONS (8)
  - Hyperbilirubinaemia [Recovering/Resolving]
  - Cholecystitis [None]
  - Infection [Recovered/Resolved]
  - Urinary tract infection [None]
  - Respiratory tract infection [Unknown]
  - Productive cough [Recovered/Resolved]
  - Product use issue [None]
  - Anaemia [Recovering/Resolving]

NARRATIVE: CASE EVENT DATE: 20230508
